FAERS Safety Report 6760371-8 (Version None)
Quarter: 2010Q2

REPORT INFORMATION
  Report Type: 
  Country: None (occurrence: None)
  Receive Date: 20100608
  Receipt Date: 20100601
  Transmission Date: 20101027
  Serious: Yes (Hospitalization)
  Sender: FDA-Public Use
  Company Number: US-ASTRAZENECA-2010SE12069

PATIENT
  Age: 23881 Day
  Sex: Male
  Weight: 79.4 kg

DRUGS (12)
  1. SEROQUEL [Suspect]
     Indication: BIPOLAR DISORDER
     Route: 048
     Dates: start: 20090101
  2. SEROQUEL [Suspect]
     Indication: SLEEP DISORDER
     Route: 048
     Dates: start: 20090101
  3. LISINOPRIL [Concomitant]
     Indication: HYPERTENSION
     Route: 048
  4. PLAVIX [Concomitant]
     Indication: CAROTID ARTERY OCCLUSION
  5. FLOMAX [Concomitant]
     Indication: PROSTATOMEGALY
  6. LEVOTHYROXINE SODIUM [Concomitant]
     Indication: THYROID DISORDER
  7. METFORMIN HCL [Concomitant]
     Indication: DIABETES MELLITUS
  8. ULTRAM [Concomitant]
     Indication: BACK PAIN
  9. ZOLOFT [Concomitant]
     Indication: DEPRESSION
  10. PREDNIZONE [Concomitant]
     Indication: SLE ARTHRITIS
  11. LOPRESSOR [Concomitant]
     Indication: HYPERTENSION
  12. PRAVASTATIN [Concomitant]
     Indication: BLOOD CHOLESTEROL INCREASED

REACTIONS (2)
  - FALL [None]
  - FEMUR FRACTURE [None]
